FAERS Safety Report 15100427 (Version 1)
Quarter: 2018Q3

REPORT INFORMATION
  Report Type: Report from Study
  Country: IT (occurrence: IT)
  Receive Date: 20180703
  Receipt Date: 20180703
  Transmission Date: 20181010
  Serious: Yes (Hospitalization)
  Sender: FDA-Public Use
  Company Number: IT-TEVA-2018-IT-920148

PATIENT
  Age: 56 Year
  Sex: Female
  Weight: 72 kg

DRUGS (1)
  1. TERBINAFINA ACTAVIS [Suspect]
     Active Substance: TERBINAFINE HYDROCHLORIDE
     Dosage: 750 MILLIGRAM DAILY;
     Route: 048
     Dates: start: 20171204, end: 20171206

REACTIONS (1)
  - No adverse event [Recovered/Resolved]

NARRATIVE: CASE EVENT DATE: 20171207
